FAERS Safety Report 16483700 (Version 1)
Quarter: 2019Q2

REPORT INFORMATION
  Report Type: Spontaneous
  Country: IT (occurrence: IT)
  Receive Date: 20190627
  Receipt Date: 20190627
  Transmission Date: 20190711
  Serious: Yes (Other)
  Sender: FDA-Public Use
  Company Number: IT-TEVA-2019-IT-1070000

PATIENT
  Age: 67 Year
  Sex: Male

DRUGS (3)
  1. OXALIPLATINO TEVA [Suspect]
     Active Substance: OXALIPLATIN
     Indication: SMALL INTESTINE CARCINOMA
     Route: 042
  2. DECADRON 8 MG/2 ML SOLUZIONE INIETTABILE - 3 FIALE DA 2 ML [Concomitant]
     Indication: PROPHYLAXIS
     Route: 042
  3. ONDANSETRON HYDROCHLORIDE. [Concomitant]
     Active Substance: ONDANSETRON HYDROCHLORIDE
     Indication: PROPHYLAXIS OF NAUSEA AND VOMITING
     Route: 042

REACTIONS (1)
  - Oral discomfort [Unknown]

NARRATIVE: CASE EVENT DATE: 20190607
